FAERS Safety Report 10476508 (Version 2)
Quarter: 2015Q4

REPORT INFORMATION
  Report Type: Spontaneous
  Country: TR (occurrence: TR)
  Receive Date: 20140925
  Receipt Date: 20151009
  Transmission Date: 20160304
  Serious: Yes (Congenital Anomaly, Other)
  Sender: FDA-Public Use
  Company Number: TR-GLAXOSMITHKLINE-B1036511A

PATIENT

DRUGS (1)
  1. LAMICTAL [Suspect]
     Active Substance: LAMOTRIGINE
     Indication: EPILEPSY
     Route: 064

REACTIONS (5)
  - Congenital eye disorder [Not Recovered/Not Resolved]
  - Premature baby [Unknown]
  - Tachycardia [Not Recovered/Not Resolved]
  - Hyporeflexia [Not Recovered/Not Resolved]
  - Foetal exposure during pregnancy [Unknown]
